FAERS Safety Report 5336744-7 (Version None)
Quarter: 2007Q2

REPORT INFORMATION
  Report Type: 
  Country: None (occurrence: None)
  Receive Date: 20070529
  Receipt Date: 20070502
  Transmission Date: 20071010
  Serious: Yes (Other)
  Sender: FDA-Public Use
  Company Number: US-RB-005138-07

PATIENT

DRUGS (1)
  1. SUBOXONE [Suspect]
     Dosage: MOTHER NOT RECEIVING CARE AT CLINIC AT TIME OF DELIVERY

REACTIONS (2)
  - DRUG EXPOSURE DURING PREGNANCY [None]
  - SMALL FOR DATES BABY [None]
